FAERS Safety Report 9124875 (Version 1)
Quarter: 2013Q1

REPORT INFORMATION
  Report Type: Spontaneous
  Country: FR (occurrence: FR)
  Receive Date: 20130227
  Receipt Date: 20130227
  Transmission Date: 20140127
  Serious: Yes (Hospitalization)
  Sender: FDA-Public Use
  Company Number: FR-B.I. PHARMACEUTICALS,INC./RIDGEFIELD-2013-FF-00445FF

PATIENT
  Sex: Female

DRUGS (4)
  1. PRADAXA [Suspect]
     Indication: ATRIAL FIBRILLATION
     Dosage: 220 MG
     Route: 048
     Dates: start: 20120426, end: 201212
  2. CORDARONE [Concomitant]
  3. APROVEL [Concomitant]
  4. CARDENSIEL [Concomitant]

REACTIONS (5)
  - Cerebral haemorrhage [Recovered/Resolved]
  - Movement disorder [Recovered/Resolved]
  - Vertigo [Recovered/Resolved]
  - Fall [Recovered/Resolved]
  - Memory impairment [Recovered/Resolved]
